FAERS Safety Report 10531189 (Version 1)
Quarter: 2014Q4

REPORT INFORMATION
  Report Type: Report from Study
  Country: US (occurrence: US)
  Receive Date: 20141021
  Receipt Date: 20141021
  Transmission Date: 20150529
  Serious: Yes (Other)
  Sender: FDA-Public Use
  Company Number: US-BRISTOL-MYERS SQUIBB COMPANY-21499108

PATIENT
  Age: 88 Year
  Sex: Female
  Weight: 70.29 kg

DRUGS (1)
  1. ORENCIA [Suspect]
     Active Substance: ABATACEPT
     Indication: RHEUMATOID ARTHRITIS
     Dosage: LAST INJECTION ON 10OCT14
     Route: 058

REACTIONS (5)
  - Hyperhidrosis [Unknown]
  - Hypokalaemia [Unknown]
  - Vomiting [Unknown]
  - Nausea [Unknown]
  - Confusional state [Unknown]

NARRATIVE: CASE EVENT DATE: 20141009
